FAERS Safety Report 17655383 (Version 1)
Quarter: 2020Q2

REPORT INFORMATION
  Report Type: Spontaneous
  Country: DE (occurrence: DE)
  Receive Date: 20200410
  Receipt Date: 20200410
  Transmission Date: 20200713
  Serious: Yes (Other)
  Sender: FDA-Public Use
  Company Number: DE-TORRENT-00017188

PATIENT
  Age: 51 Year
  Sex: Male

DRUGS (4)
  1. DEXAMETHASONE. [Interacting]
     Active Substance: DEXAMETHASONE
     Indication: CHRONIC MYELOID LEUKAEMIA
     Dosage: HIGH-DOSE REMISSION INDUCTION
  2. PEGASPARGASE [Interacting]
     Active Substance: PEGASPARGASE
     Indication: CHRONIC MYELOID LEUKAEMIA
     Dosage: 1,000 IU/M2 FOR A TOTAL OF 2,060 IU REMISSION INDUCTION
  3. PONATINIB [Concomitant]
     Active Substance: PONATINIB
     Indication: CHRONIC MYELOID LEUKAEMIA
     Dosage: UNKNOWN
  4. FENOFIBRATE. [Suspect]
     Active Substance: FENOFIBRATE
     Indication: HYPERTRIGLYCERIDAEMIA
     Dosage: UNKNOWN

REACTIONS (5)
  - Hepatotoxicity [Recovered/Resolved]
  - Hyperbilirubinaemia [Recovered/Resolved]
  - Hypertriglyceridaemia [Recovered/Resolved]
  - Drug interaction [Unknown]
  - Transaminases increased [Recovered/Resolved]
